FAERS Safety Report 7572402-6 (Version None)
Quarter: 2011Q2

REPORT INFORMATION
  Report Type: 
  Country: None (occurrence: None)
  Receive Date: 20110624
  Receipt Date: 20110621
  Transmission Date: 20111010
  Serious: Yes (Hospitalization)
  Sender: FDA-Public Use
  Company Number: PHHY2011US08935

PATIENT
  Sex: Male

DRUGS (5)
  1. PREDNISONE [Concomitant]
  2. HYPERTONIC SOLUTIONS [Concomitant]
  3. CONTINUOUS POSITIVE AIRWAY PRESSURE [Concomitant]
     Indication: SLEEP APNOEA SYNDROME
  4. TOBI [Suspect]
     Indication: BRONCHIECTASIS
     Dosage: 300 MG, BID
     Dates: start: 20110128
  5. AZITHROMYCIN [Concomitant]

REACTIONS (11)
  - NOCTURNAL DYSPNOEA [None]
  - DYSPNOEA [None]
  - PRODUCTIVE COUGH [None]
  - PALPITATIONS [None]
  - FEELING ABNORMAL [None]
  - PNEUMONIA [None]
  - TACHYCARDIA [None]
  - OXYGEN SATURATION DECREASED [None]
  - HYPOXIA [None]
  - SINUSITIS [None]
  - ANXIETY [None]
